FAERS Safety Report 5263153-1 (Version None)
Quarter: 2007Q1

REPORT INFORMATION
  Report Type: 
  Country: None (occurrence: None)
  Receive Date: 20070312
  Receipt Date: 20070228
  Transmission Date: 20070707
  Serious: Yes (Other)
  Sender: FDA-Public Use
  Company Number: DE-GILEAD-2007-0011075

PATIENT
  Sex: Male

DRUGS (6)
  1. TRUVADA [Suspect]
  2. KALETRA [Suspect]
  3. VINBLASTINE SULFATE [Suspect]
     Indication: HODGKIN'S DISEASE
  4. DOXORUBICIN HCL [Concomitant]
     Indication: HODGKIN'S DISEASE
  5. DACARBAZINE [Concomitant]
     Indication: HODGKIN'S DISEASE
  6. BLEOMYCIN [Concomitant]
     Indication: HODGKIN'S DISEASE

REACTIONS (1)
  - LEUKOPENIA [None]
